FAERS Safety Report 18230319 (Version 1)
Quarter: 2020Q3

REPORT INFORMATION
  Report Type: Spontaneous
  Country: US (occurrence: US)
  Receive Date: 20200903
  Receipt Date: 20200903
  Transmission Date: 20201103
  Serious: Yes (Other)
  Sender: FDA-Public Use
  Company Number: US-TOLMAR, INC.-20US022608

PATIENT
  Age: 85 Year
  Sex: Male

DRUGS (1)
  1. ELIGARD [Suspect]
     Active Substance: LEUPROLIDE ACETATE
     Indication: METASTATIC SALIVARY GLAND CANCER
     Dosage: UNK
     Route: 065

REACTIONS (2)
  - Metastases to lung [Recovered/Resolved with Sequelae]
  - Off label use [Unknown]
